FAERS Safety Report 20972261 (Version 1)
Quarter: 2022Q2

REPORT INFORMATION
  Report Type: Report from Study
  Country: BR (occurrence: BR)
  Receive Date: 20220616
  Receipt Date: 20220616
  Transmission Date: 20220721
  Serious: Yes (Other)
  Sender: FDA-Public Use
  Company Number: BR-JNJFOC-20220154733

PATIENT
  Age: 72 Year
  Sex: Male
  Weight: 81 kg

DRUGS (5)
  1. INFLIXIMAB [Suspect]
     Active Substance: INFLIXIMAB
     Indication: Colitis
     Dosage: ALSO REPORTED AS FEB-2014
     Route: 041
     Dates: start: 20151014
  2. INFLIXIMAB [Suspect]
     Active Substance: INFLIXIMAB
     Indication: Colitis
  3. REMICADE [Suspect]
     Active Substance: INFLIXIMAB
     Indication: Colitis
     Dosage: ALSO REPORTED AS FEB-2014
     Route: 041
     Dates: start: 20151014
  4. REMICADE [Suspect]
     Active Substance: INFLIXIMAB
     Indication: Colitis
  5. METHOTREXATE [Concomitant]
     Active Substance: METHOTREXATE

REACTIONS (5)
  - COVID-19 pneumonia [Recovered/Resolved]
  - Syncope [Recovering/Resolving]
  - Gastrointestinal inflammation [Unknown]
  - Memory impairment [Not Recovered/Not Resolved]
  - Product dose omission issue [Unknown]

NARRATIVE: CASE EVENT DATE: 20210525
